FAERS Safety Report 5488424-5 (Version None)
Quarter: 2007Q3

REPORT INFORMATION
  Report Type: 
  Country: None (occurrence: None)
  Receive Date: 20070927
  Receipt Date: 20070718
  Transmission Date: 20080115
  Serious: No
  Sender: FDA-Public Use
  Company Number: US-CVT-070136

PATIENT
  Age: 72 Year
  Sex: Male

DRUGS (2)
  1. RANEXA [Suspect]
     Indication: ANGINA UNSTABLE
     Dosage: 500 MG, BID, ORAL
     Route: 048
     Dates: end: 20070101
  2. INSULIN/00030501/ (INSULIN) [Concomitant]

REACTIONS (2)
  - HYPOGLYCAEMIA [None]
  - PRESYNCOPE [None]
